FAERS Safety Report 11964778 (Version 1)
Quarter: 2016Q1

REPORT INFORMATION
  Report Type: Spontaneous
  Country: US (occurrence: US)
  Receive Date: 20160127
  Receipt Date: 20160127
  Transmission Date: 20160526
  Serious: No
  Sender: FDA-Public Use
  Company Number: US-PFIZER INC-2016014406

PATIENT
  Age: 53 Year
  Sex: Male
  Weight: 100 kg

DRUGS (1)
  1. GABAPENTIN. [Suspect]
     Active Substance: GABAPENTIN
     Indication: DIABETIC NEUROPATHY
     Dosage: 300 MG,  ONE AT BREAKFAST, TWO AT LUNCH, THREE AT BEDTIME
     Route: 048
     Dates: start: 2013, end: 20151228

REACTIONS (1)
  - Drug ineffective for unapproved indication [Unknown]
